FAERS Safety Report 8266166-0 (Version None)
Quarter: 2012Q1

REPORT INFORMATION
  Report Type: 
  Country: None (occurrence: None)
  Receive Date: 20120327
  Receipt Date: 20090922
  Transmission Date: 20120608
  Serious: Yes (Other)
  Sender: FDA-Public Use
  Company Number: PHEH2009US11456

PATIENT
  Age: 63 Year
  Sex: Male
  Weight: 63.9 kg

DRUGS (1)
  1. GLEEVEC [Suspect]
     Indication: CHRONIC MYELOID LEUKAEMIA
     Dosage: 300; 200 MG, QOD, ORAL
     Route: 048
     Dates: start: 20080211, end: 20090922

REACTIONS (1)
  - DEPRESSION [None]
